FAERS Safety Report 24178453 (Version 1)
Quarter: 2024Q3

REPORT INFORMATION
  Report Type: Spontaneous
  Country: US (occurrence: US)
  Receive Date: 20240806
  Receipt Date: 20240806
  Transmission Date: 20241017
  Serious: Yes (Hospitalization)
  Sender: CHEPLAPHARM
  Company Number: US-CHEPLA-2024010037

PATIENT
  Sex: Male

DRUGS (6)
  1. CLONAZEPAM [Suspect]
     Active Substance: CLONAZEPAM
  2. QUETIAPINE [Suspect]
     Active Substance: QUETIAPINE
  3. FLUOXETINE [Suspect]
     Active Substance: FLUOXETINE HYDROCHLORIDE
  4. HYDROMORPHONE [Suspect]
     Active Substance: HYDROMORPHONE
  5. METHADONE [Suspect]
     Active Substance: METHADONE HYDROCHLORIDE
  6. OXYCODONE [Suspect]
     Active Substance: OXYCODONE

REACTIONS (7)
  - Hypertonia [Unknown]
  - Decerebrate posture [Unknown]
  - Apgar score low [Unknown]
  - Infantile back arching [Unknown]
  - Premature baby [Unknown]
  - Drug withdrawal syndrome neonatal [Unknown]
  - Foetal exposure during pregnancy [Unknown]
